FAERS Safety Report 20992375 (Version 1)
Quarter: 2022Q2

REPORT INFORMATION
  Report Type: Spontaneous
  Country: CN (occurrence: CN)
  Receive Date: 20220622
  Receipt Date: 20220622
  Transmission Date: 20220721
  Serious: Yes (Hospitalization)
  Sender: FDA-Public Use
  Company Number: CN-BAYER-2022A083936

PATIENT
  Age: 49 Year
  Sex: Female
  Weight: 55 kg

DRUGS (3)
  1. LORATADINE [Suspect]
     Active Substance: LORATADINE
     Indication: Urticaria
     Dosage: 10 MG, QD
     Route: 048
     Dates: start: 20220529, end: 20220530
  2. LORATADINE [Suspect]
     Active Substance: LORATADINE
     Indication: Urticaria
     Dosage: 10 MG, QD
     Route: 048
     Dates: start: 20220520, end: 20220528
  3. CHLORPHENIRAMINE MALEATE [Concomitant]
     Active Substance: CHLORPHENIRAMINE MALEATE
     Indication: Urticaria
     Dosage: 4 MG, TID
     Route: 048
     Dates: start: 20220524, end: 20220527

REACTIONS (11)
  - Face oedema [Recovering/Resolving]
  - Dizziness [Recovering/Resolving]
  - Tinnitus [Recovering/Resolving]
  - Oedema peripheral [Recovering/Resolving]
  - Hypoaesthesia [Recovering/Resolving]
  - Headache [Recovering/Resolving]
  - Ear pain [Recovering/Resolving]
  - Tachycardia [Recovering/Resolving]
  - Urticaria [Recovering/Resolving]
  - Pruritus [Recovering/Resolving]
  - Muscular weakness [Recovering/Resolving]

NARRATIVE: CASE EVENT DATE: 20220530
